FAERS Safety Report 4850296-7 (Version None)
Quarter: 2005Q4

REPORT INFORMATION
  Report Type: 
  Country: None (occurrence: None)
  Receive Date: 20051123
  Receipt Date: 20050822
  Transmission Date: 20060501
  Serious: No
  Sender: FDA-Public Use
  Company Number: 217100

PATIENT
  Age: 39 Year
  Sex: Female
  Weight: 73.5 kg

DRUGS (1)
  1. RAPTIVA [Suspect]
     Indication: PSORIASIS
     Dosage: 0.5 ML, 1/WEEK, SUBCUTANEOUS
     Route: 058
     Dates: start: 20050819

REACTIONS (3)
  - CHILLS [None]
  - HEADACHE [None]
  - PARAESTHESIA [None]
